FAERS Safety Report 24830294 (Version 1)
Quarter: 2025Q1

REPORT INFORMATION
  Report Type: Spontaneous
  Country: US (occurrence: US)
  Receive Date: 20250110
  Receipt Date: 20250110
  Transmission Date: 20250408
  Serious: No
  Sender: BIOVITRUM
  Company Number: US-BIOVITRUM-2025-US-000357

PATIENT
  Age: 73 Year
  Sex: Female

DRUGS (2)
  1. VONJO [Suspect]
     Active Substance: PACRITINIB
     Indication: Product used for unknown indication
     Route: 048
  2. OJJAARA [Concomitant]
     Active Substance: MOMELOTINIB DIHYDROCHLORIDE MONOHYDRATE
     Indication: Product used for unknown indication

REACTIONS (2)
  - Nausea [Unknown]
  - Night sweats [Unknown]
